FAERS Safety Report 7313889-3 (Version None)
Quarter: 2011Q1

REPORT INFORMATION
  Report Type: 
  Country: None (occurrence: None)
  Receive Date: 20110225
  Receipt Date: 20110215
  Transmission Date: 20110831
  Serious: Yes (Hospitalization, Other)
  Sender: FDA-Public Use
  Company Number: AT-ABBOTT-09P-009-0581881-00

PATIENT
  Sex: Female
  Weight: 49 kg

DRUGS (16)
  1. URBASON [Concomitant]
     Indication: CROHN'S DISEASE
     Dates: start: 19980301, end: 20080825
  2. SERETIDE [Concomitant]
     Indication: ASTHMA
     Route: 055
     Dates: start: 20090624
  3. PREDNISONE [Concomitant]
     Indication: CROHN'S DISEASE
     Dates: start: 20090728
  4. LISIHEXAL [Concomitant]
     Indication: HYPERTONIA
  5. FOLSAN [Concomitant]
     Indication: FOLATE DEFICIENCY
  6. EBETREXAT [Concomitant]
     Dates: start: 20090624, end: 20090727
  7. HUMIRA [Suspect]
     Indication: CROHN'S DISEASE
     Route: 058
     Dates: start: 20080219, end: 20080219
  8. HUMIRA [Suspect]
     Route: 058
  9. PREDNISONE [Concomitant]
     Dates: start: 20090624, end: 20090707
  10. NEXIUM [Concomitant]
     Indication: PROPHYLAXIS AGAINST GASTROINTESTINAL ULCER
     Dates: start: 20090624, end: 20100203
  11. HUMIRA [Suspect]
     Route: 058
     Dates: end: 20090610
  12. SPIRIVA [Concomitant]
     Indication: ASTHMA
     Route: 055
     Dates: start: 20090628
  13. PREDNISONE [Concomitant]
     Dates: start: 20090708, end: 20090727
  14. FOLSAN [Concomitant]
     Indication: PROPHYLAXIS
     Dates: start: 20050506, end: 20090623
  15. EBETREXAT [Concomitant]
     Indication: CROHN'S DISEASE
     Dates: start: 20090728
  16. LISIHEXAL [Concomitant]
     Indication: PAIN
     Dates: start: 20090624

REACTIONS (3)
  - BONE MARROW OEDEMA [None]
  - TENOSYNOVITIS [None]
  - OSTEOARTHRITIS [None]
